FAERS Safety Report 18171141 (Version 1)
Quarter: 2020Q3

REPORT INFORMATION
  Report Type: Spontaneous
  Country: US (occurrence: US)
  Receive Date: 20200819
  Receipt Date: 20200819
  Transmission Date: 20201103
  Serious: No
  Sender: FDA-Public Use
  Company Number: US-OREXO US, INC.-ORE202001-000009

PATIENT
  Age: 51 Year
  Sex: Female

DRUGS (2)
  1. VITAMINS [Concomitant]
     Active Substance: VITAMINS
  2. ZUBSOLV [Suspect]
     Active Substance: BUPRENORPHINE HYDROCHLORIDE\NALOXONE HYDROCHLORIDE
     Indication: DEPENDENCE
     Dosage: ONCE A DAY

REACTIONS (3)
  - Drug level decreased [Recovered/Resolved]
  - Nasopharyngitis [Recovered/Resolved]
  - Rhinorrhoea [Recovered/Resolved]

NARRATIVE: CASE EVENT DATE: 201911
